FAERS Safety Report 18587002 (Version 1)
Quarter: 2020Q4

REPORT INFORMATION
  Report Type: Spontaneous
  Country: US (occurrence: US)
  Receive Date: 20201207
  Receipt Date: 20201207
  Transmission Date: 20210114
  Serious: Yes (Hospitalization)
  Sender: FDA-Public Use
  Company Number: US-MYLANLABS-2020M1100634

PATIENT
  Age: 15 Year
  Sex: Female

DRUGS (2)
  1. GEMCITABINE. [Suspect]
     Active Substance: GEMCITABINE
     Indication: ACINAR CELL CARCINOMA OF PANCREAS
     Dosage: 1000 MILLIGRAM/SQ. METER, CYCLE, EVERY 28 DAYS
     Route: 065
  2. PACLITAXEL. [Suspect]
     Active Substance: PACLITAXEL
     Indication: ACINAR CELL CARCINOMA OF PANCREAS
     Dosage: 125 MILLIGRAM/SQ. METER, QW, FOR 3 WEEKS WITH A 1 WEEK REST
     Route: 042

REACTIONS (3)
  - Neutropenia [Unknown]
  - Toxicity to various agents [Unknown]
  - Pyrexia [Unknown]
